FAERS Safety Report 23316815 (Version 2)
Quarter: 2024Q2

REPORT INFORMATION
  Report Type: Spontaneous
  Country: US (occurrence: None)
  Receive Date: 20231219
  Receipt Date: 20240516
  Transmission Date: 20240716
  Serious: Yes (Hospitalization)
  Sender: FDA-Public Use
  Company Number: US-ROCHE-3401062

PATIENT
  Age: 22 Year
  Sex: Male

DRUGS (2)
  1. HEMLIBRA [Suspect]
     Active Substance: EMICIZUMAB-KXWH
     Indication: Factor VIII deficiency
     Dosage: 60 MG/0.4 ML
     Route: 058
     Dates: start: 202111
  2. HEMLIBRA [Suspect]
     Active Substance: EMICIZUMAB-KXWH
     Dosage: 105 MG/0.4 ML
     Route: 058
     Dates: start: 202111

REACTIONS (3)
  - Nephritis [Unknown]
  - Mouth haemorrhage [Recovered/Resolved]
  - Renal haemorrhage [Unknown]

NARRATIVE: CASE EVENT DATE: 20230728
